FAERS Safety Report 9629822 (Version 1)
Quarter: 2013Q4

REPORT INFORMATION
  Report Type: Spontaneous
  Country: AT (occurrence: AT)
  Receive Date: 20131017
  Receipt Date: 20131017
  Transmission Date: 20140711
  Serious: Yes (Other)
  Sender: FDA-Public Use
  Company Number: AT-PFIZER INC-2013294769

PATIENT
  Age: 77 Year
  Sex: Female
  Weight: 54.4 kg

DRUGS (26)
  1. LYRICA [Suspect]
     Dosage: 25 MG, UNK
     Dates: start: 20130419, end: 20130509
  2. LYRICA [Suspect]
     Dosage: 50 MG, UNK
     Dates: start: 20130510
  3. ZYPREXA VELOTAB [Suspect]
     Dosage: 2.5 MG, UNK
     Dates: start: 20130327, end: 20130401
  4. ZYPREXA VELOTAB [Suspect]
     Dosage: 5 MG, UNK
     Dates: start: 20130402, end: 20130407
  5. ZYPREXA VELOTAB [Suspect]
     Dosage: 7.5 MG, UNK
     Dates: start: 20130408, end: 20130409
  6. ZYPREXA VELOTAB [Suspect]
     Dosage: 10 MG, UNK
     Dates: start: 20130409, end: 20130519
  7. MIRTABENE [Suspect]
     Dosage: 60 MG, UNK
     Dates: start: 201302, end: 20130328
  8. MIRTABENE [Suspect]
     Dosage: 45 MG, UNK
     Dates: start: 20130329
  9. SEROXAT [Suspect]
     Dosage: 20 MG, UNK
     Dates: start: 201210, end: 20130408
  10. SEROXAT [Suspect]
     Dosage: 30 MG, UNK
     Dates: start: 20130409
  11. RIVOTRIL [Suspect]
     Dosage: 0.5 MG, UNK
     Dates: start: 201210, end: 20130317
  12. RIVOTRIL [Suspect]
     Dosage: 0.5 MG, UNK
     Dates: start: 20130406, end: 20130407
  13. RIVOTRIL [Suspect]
     Dosage: 0.75 MG, UNK
     Dates: start: 20130408, end: 20130424
  14. RIVOTRIL [Suspect]
     Dosage: 0.5 MG, UNK
     Dates: start: 20130425, end: 20130509
  15. RIVOTRIL [Suspect]
     Dosage: 0.25 MG, UNK
     Dates: start: 20130510
  16. BELOC [Suspect]
     Dosage: 50 MG, UNK
     Dates: start: 201211, end: 20130319
  17. BELOC [Suspect]
     Dosage: 25 MG, UNK
     Dates: start: 20130320, end: 20130321
  18. BELOC [Suspect]
     Dosage: 25 MG, UNK
     Dates: start: 20130326
  19. PANTOLOC [Concomitant]
     Dosage: 40 MG, UNK
     Dates: start: 201211
  20. EUTHYROX [Concomitant]
     Dosage: 37.5 UG, UNK
     Dates: start: 201210
  21. CIPROXIN [Concomitant]
     Dosage: 500 MG, UNK
     Dates: start: 20130425, end: 20130427
  22. ANTIBIOPHILUS [Concomitant]
     Dosage: 2 DF, UNK
     Dates: start: 20130425, end: 20130427
  23. RESOURCE [Concomitant]
     Dosage: 2 DF, UNK
     Dates: start: 20130314
  24. OPTIFIBRE [Concomitant]
     Dosage: 3 DF, UNK
     Dates: start: 201210, end: 20130319
  25. OPTIFIBRE [Concomitant]
     Dosage: 2 DF, UNK
     Dates: start: 20130320
  26. MULTIBIONTA [Concomitant]
     Dosage: 1 DF, UNK
     Dates: start: 20130420

REACTIONS (4)
  - Dysphagia [Recovered/Resolved]
  - Dysphagia [Recovered/Resolved]
  - Cyanosis [Unknown]
  - Oxygen saturation decreased [Unknown]
